FAERS Safety Report 8808849 (Version 1)
Quarter: 2012Q4

REPORT INFORMATION
  Report Type: Spontaneous
  Country: US (occurrence: None)
  Receive Date: 20120921
  Receipt Date: 20120921
  Transmission Date: 20130627
  Serious: Yes (Life-Threatening, Hospitalization)
  Sender: FDA-Public Use
  Company Number: None

PATIENT
  Age: 78 Year
  Sex: Male
  Weight: 71.9 kg

DRUGS (1)
  1. WARFARIN [Suspect]
     Indication: ATRIAL FIBRILLATION WITH RAPID VENTRICULAR RESPONSE
     Dates: start: 20111026, end: 20120804

REACTIONS (5)
  - Gastric haemorrhage [None]
  - Abdominal pain lower [None]
  - Dizziness [None]
  - Electrocardiogram change [None]
  - International normalised ratio increased [None]
